FAERS Safety Report 4417676-5 (Version None)
Quarter: 2004Q2

REPORT INFORMATION
  Report Type: 
  Country: None (occurrence: None)
  Receive Date: 20040629
  Receipt Date: 20040107
  Transmission Date: 20050107
  Serious: Yes (Other)
  Sender: FDA-Public Use
  Company Number: USA031254895

PATIENT
  Age: 76 Year
  Sex: Female
  Weight: 55 kg

DRUGS (2)
  1. HUMULIN N [Suspect]
     Dosage: 20 U/DAY
     Dates: start: 19930101, end: 20030401
  2. HUMALOG [Suspect]
     Dosage: 15 U/DAY
     Dates: start: 20030401

REACTIONS (2)
  - BLOOD GLUCOSE INCREASED [None]
  - RENAL FAILURE [None]
